FAERS Safety Report 20232541 (Version 1)
Quarter: 2021Q4

REPORT INFORMATION
  Report Type: Spontaneous
  Country: US (occurrence: None)
  Receive Date: 20211223
  Receipt Date: 20211223
  Transmission Date: 20220303
  Serious: No
  Sender: FDA-Public Use
  Company Number: None

PATIENT
  Age: 65 Year
  Sex: Female
  Weight: 74.84 kg

DRUGS (1)
  1. HUMIRA [Suspect]
     Active Substance: ADALIMUMAB
     Indication: Sarcoidosis
     Dosage: FREQUENCY : WEEKLY;?
     Route: 058
     Dates: start: 202104

REACTIONS (5)
  - Urinary tract infection [None]
  - Diarrhoea [None]
  - Gastric disorder [None]
  - Colitis [None]
  - Clostridium test positive [None]
